FAERS Safety Report 11327580 (Version 1)
Quarter: 2015Q3

REPORT INFORMATION
  Report Type: Spontaneous
  Country: US (occurrence: US)
  Receive Date: 20150731
  Receipt Date: 20150731
  Transmission Date: 20151125
  Serious: Yes (Other)
  Sender: FDA-Public Use
  Company Number: US-UCBSA-2015024081

PATIENT
  Sex: Female

DRUGS (2)
  1. DEPAKOTE [Concomitant]
     Active Substance: DIVALPROEX SODIUM
     Indication: PRODUCT USED FOR UNKNOWN INDICATION
  2. KEPPRA [Suspect]
     Active Substance: LEVETIRACETAM
     Indication: SEIZURE
     Dosage: 2250 MG (750 MG 3 TABLETS), 3 TABLETS IN THE MORNING, 3 TABLETS IN THE EVENING (BID)

REACTIONS (4)
  - Seizure [Not Recovered/Not Resolved]
  - Tongue biting [Not Recovered/Not Resolved]
  - Overdose [Unknown]
  - Off label use [Unknown]
